FAERS Safety Report 6989597-5 (Version None)
Quarter: 2010Q3

REPORT INFORMATION
  Report Type: 
  Country: None (occurrence: None)
  Receive Date: 20100916
  Receipt Date: 20100110
  Transmission Date: 20110219
  Serious: Yes (Death)
  Sender: FDA-Public Use
  Company Number: US-PFIZER INC-2010004299

PATIENT
  Age: 46 Year
  Sex: Male

DRUGS (1)
  1. LYRICA [Suspect]
     Dates: start: 20090101, end: 20090101

REACTIONS (1)
  - DEATH [None]
